FAERS Safety Report 18011639 (Version 4)
Quarter: 2020Q3

REPORT INFORMATION
  Report Type: Spontaneous
  Country: US (occurrence: US)
  Receive Date: 20200713
  Receipt Date: 20200819
  Transmission Date: 20201103
  Serious: No
  Sender: FDA-Public Use
  Company Number: US-BIOGEN-2020BI00889061

PATIENT
  Age: 38 Year
  Sex: Female

DRUGS (5)
  1. TECFIDERA [Suspect]
     Active Substance: DIMETHYL FUMARATE
     Dosage: TAKE (120MG) 1 CAPSULE BY MOUTH TWICE DAILY FOR 7?DAYS, THEN (240MG) 1 CAPSULE TWICE DAILY THEREA...
     Route: 048
     Dates: start: 20200620
  2. VITAMIN D [Concomitant]
     Active Substance: VITAMIN D NOS
     Route: 065
  3. TECFIDERA [Suspect]
     Active Substance: DIMETHYL FUMARATE
     Dosage: TAKE (120MG) 1 CAPSULE BY MOUTH TWICE DAILY FOR 7 DAYS, THEN (240MG) 1 CAPSULE TWICE DAILY THERE ...
     Route: 048
     Dates: start: 2020
  4. TECFIDERA [Suspect]
     Active Substance: DIMETHYL FUMARATE
     Indication: MULTIPLE SCLEROSIS
     Dosage: TAKE (120MG) 1 CAPSULE BY MOUTH TWICE DAILY FOR 7?DAYS, THEN (240MG) 1 CAPSULE TWICE DAILY THEREA...
     Route: 048
     Dates: start: 20200613, end: 20200619
  5. TECFIDERA [Suspect]
     Active Substance: DIMETHYL FUMARATE
     Route: 048
     Dates: start: 2020

REACTIONS (10)
  - Hot flush [Not Recovered/Not Resolved]
  - Abdominal pain upper [Recovered/Resolved with Sequelae]
  - Nausea [Unknown]
  - Vomiting [Recovered/Resolved]
  - Band sensation [Not Recovered/Not Resolved]
  - Abdominal discomfort [Recovered/Resolved with Sequelae]
  - Asthenia [Recovered/Resolved with Sequelae]
  - Abdominal distension [Recovered/Resolved]
  - Abdominal discomfort [Unknown]
  - Pruritus [Unknown]

NARRATIVE: CASE EVENT DATE: 202006
